FAERS Safety Report 6945006-3 (Version None)
Quarter: 2010Q3

REPORT INFORMATION
  Report Type: 
  Country: None (occurrence: None)
  Receive Date: 20100827
  Receipt Date: 20100814
  Transmission Date: 20110219
  Serious: Yes (Other)
  Sender: FDA-Public Use
  Company Number: PHHY2010MX54949

PATIENT
  Age: 34 Year
  Sex: Female

DRUGS (4)
  1. TEGRETOL [Suspect]
     Dosage: TWO 0.5 DF, UNK
     Route: 048
     Dates: start: 20100301
  2. ATEMPERATOR LP [Concomitant]
     Dosage: 3 DF, UNK
     Dates: start: 20100101
  3. PHENYTOIN [Concomitant]
     Dosage: 1.5 DF, UNK
     Dates: start: 20080101
  4. VAIIUM [Concomitant]
     Dosage: 0.5 DF, UNK
     Dates: start: 20100201

REACTIONS (4)
  - CAESAREAN SECTION [None]
  - DRUG EXPOSURE DURING PREGNANCY [None]
  - DRUG EXPOSURE VIA BREAST MILK [None]
  - NORMAL NEWBORN [None]
